FAERS Safety Report 25734354 (Version 1)
Quarter: 2025Q3

REPORT INFORMATION
  Report Type: Spontaneous
  Country: US (occurrence: None)
  Receive Date: 20250827
  Receipt Date: 20250827
  Transmission Date: 20251020
  Serious: Yes (Other)
  Sender: FDA-CTU
  Company Number: None

PATIENT
  Age: 55 Year
  Sex: Female

DRUGS (18)
  1. ADEMPAS [Suspect]
     Active Substance: RIOCIGUAT
     Indication: Pulmonary arterial hypertension
     Dosage: 1 MG TID ORAL
     Dates: start: 20221021
  2. OPSUMIT [Suspect]
     Active Substance: MACITENTAN
  3. OPSUMIT [Concomitant]
     Active Substance: MACITENTAN
  4. HYDROMORPHONE [Concomitant]
     Active Substance: HYDROMORPHONE
  5. PREGABALIN [Concomitant]
     Active Substance: PREGABALIN
  6. NARCAN [Concomitant]
     Active Substance: NALOXONE HYDROCHLORIDE
  7. WINREVAIR [Concomitant]
     Active Substance: SOTATERCEPT-CSRK
  8. SENNA [Concomitant]
     Active Substance: SENNOSIDES
  9. MIRALAX [Concomitant]
     Active Substance: POLYETHYLENE GLYCOL 3350
  10. FLEET ENEMA [Concomitant]
     Active Substance: SODIUM PHOSPHATE, DIBASIC\SODIUM PHOSPHATE, MONOBASIC
  11. FUROSEMIDE [Concomitant]
     Active Substance: FUROSEMIDE
  12. RIMEGEPANT [Concomitant]
     Active Substance: RIMEGEPANT
  13. POTASSIUM CHLORIDE [Concomitant]
     Active Substance: POTASSIUM CHLORIDE
  14. PAROXETINE [Concomitant]
     Active Substance: PAROXETINE
  15. TRAZODONE [Concomitant]
     Active Substance: TRAZODONE HYDROCHLORIDE
  16. OMEPRAZOLE [Concomitant]
     Active Substance: OMEPRAZOLE
  17. FOLIC ACID [Concomitant]
     Active Substance: FOLIC ACID
  18. VITAMIN B12 [Concomitant]
     Active Substance: CYANOCOBALAMIN

REACTIONS (2)
  - Back pain [None]
  - Constipation [None]

NARRATIVE: CASE EVENT DATE: 20250810
